FAERS Safety Report 7716182-X (Version None)
Quarter: 2011Q3

REPORT INFORMATION
  Report Type: 
  Country: None (occurrence: None)
  Receive Date: 20110811
  Receipt Date: 20110418
  Transmission Date: 20111222
  Serious: Yes (Hospitalization)
  Sender: FDA-Public Use
  Company Number: 2010025777

PATIENT
  Sex: Female

DRUGS (2)
  1. BERINERT [Suspect]
     Indication: HEREDITARY ANGIOEDEMA
     Dosage: SEE IMAGE
     Route: 042
     Dates: start: 20110404
  2. BERINERT [Suspect]
     Indication: HEREDITARY ANGIOEDEMA
     Dosage: SEE IMAGE
     Route: 042
     Dates: start: 20110802

REACTIONS (5)
  - HYPOTENSION [None]
  - MUSCLE SPASMS [None]
  - INFUSION SITE PAIN [None]
  - RESPIRATORY DISTRESS [None]
  - DRUG INEFFECTIVE [None]
